FAERS Safety Report 7655496-9 (Version None)
Quarter: 2011Q3

REPORT INFORMATION
  Report Type: 
  Country: None (occurrence: None)
  Receive Date: 20110804
  Receipt Date: 20110726
  Transmission Date: 20111222
  Serious: Yes (Other)
  Sender: FDA-Public Use
  Company Number: ES-ABBOTT-11P-144-0840573-00

PATIENT

DRUGS (2)
  1. PREDNISONE [Concomitant]
     Indication: PRODUCT USED FOR UNKNOWN INDICATION
  2. ADALIMUMAB [Suspect]
     Indication: CROHN'S DISEASE
     Dosage: INDUCTION DOSE, THEN 40 MG EVERY TWO WEEKS
     Route: 058

REACTIONS (2)
  - DRUG INEFFECTIVE [None]
  - ILEAL STENOSIS [None]
